FAERS Safety Report 6472221-8 (Version None)
Quarter: 2009Q4

REPORT INFORMATION
  Report Type: 
  Country: None (occurrence: None)
  Receive Date: 20091130
  Receipt Date: 20091005
  Transmission Date: 20100525
  Serious: Yes (Hospitalization)
  Sender: FDA-Public Use
  Company Number: 001607

PATIENT
  Age: 53 Year
  Sex: Female

DRUGS (1)
  1. TYLEX /00116401/ (CO-CODAMOL) [Suspect]
     Dosage: (ACETAMINOPHEN 500MG/CODEINE 30 MG)

REACTIONS (5)
  - BLISTER [None]
  - DERMATITIS BULLOUS [None]
  - DRUG TOXICITY [None]
  - ERYTHEMA [None]
  - RESPIRATORY FAILURE [None]
